FAERS Safety Report 8890653 (Version 2)
Quarter: 2013Q1

REPORT INFORMATION
  Report Type: Report from Study
  Country: US (occurrence: US)
  Receive Date: 20121107
  Receipt Date: 20130122
  Transmission Date: 20140127
  Serious: Yes (Hospitalization)
  Sender: FDA-Public Use
  Company Number: US-JNJFOC-20121102303

PATIENT
  Age: 18 Year
  Sex: Female
  Weight: 71.9 kg

DRUGS (8)
  1. REMICADE [Suspect]
     Indication: INFLAMMATORY BOWEL DISEASE
     Route: 042
     Dates: start: 20030721
  2. PREDNISONE [Concomitant]
  3. METHOTREXATE [Concomitant]
  4. ANTIBIOTICS FOR IBD [Concomitant]
  5. FERROUS SULFATE [Concomitant]
  6. SUDAFED [Concomitant]
  7. FOLIC ACID [Concomitant]
  8. LANSOPRAZOLE [Concomitant]

REACTIONS (1)
  - Anal fissure [Recovered/Resolved]
